FAERS Safety Report 19370230 (Version 1)
Quarter: 2021Q2

REPORT INFORMATION
  Report Type: Spontaneous
  Country: JP (occurrence: JP)
  Receive Date: 20210603
  Receipt Date: 20210603
  Transmission Date: 20210717
  Serious: Yes (Other)
  Sender: FDA-Public Use
  Company Number: JP-DSJP-DSJ-2021-115817AA

PATIENT
  Age: 8 Decade
  Sex: Male

DRUGS (3)
  1. LIXIANA TABLETS [Suspect]
     Active Substance: EDOXABAN TOSYLATE
     Indication: ENDOCARDITIS NONINFECTIVE
     Dosage: 60MG/DAY
     Route: 065
  2. AMPICILLIN AND SULBACTAM [Concomitant]
     Active Substance: AMPICILLIN SODIUM\SULBACTAM SODIUM
     Dosage: UNK
     Route: 065
  3. CTRX [Concomitant]
     Dosage: UNK
     Route: 065

REACTIONS (2)
  - Cerebellar haemorrhage [Unknown]
  - Cerebral infarction [Unknown]
